FAERS Safety Report 16812896 (Version 1)
Quarter: 2019Q3

REPORT INFORMATION
  Report Type: Other
  Country: US (occurrence: US)
  Receive Date: 20190916
  Receipt Date: 20190916
  Transmission Date: 20191005
  Serious: No
  Sender: FDA-Public Use
  Company Number: US-LEADIANT BIOSCIENCES INC-2018STPI000495

PATIENT
  Sex: Male

DRUGS (7)
  1. LOSARTAN POTASSIUM. [Concomitant]
     Active Substance: LOSARTAN POTASSIUM
  2. ONDANSETRON [Concomitant]
     Active Substance: ONDANSETRON
  3. SODIUM BICARBONATE. [Concomitant]
     Active Substance: SODIUM BICARBONATE
  4. ATORVASTATIN [Concomitant]
     Active Substance: ATORVASTATIN
  5. MATULANE [Suspect]
     Active Substance: PROCARBAZINE HYDROCHLORIDE
     Indication: NON-HODGKIN^S LYMPHOMA
     Dosage: 200 MG, QD FOR 7 DAYS OFF AND 14 DAYS ON
     Route: 048
     Dates: start: 20180719
  6. KEPPRA [Concomitant]
     Active Substance: LEVETIRACETAM
  7. DEXAMETHASON                       /00016001/ [Concomitant]
     Active Substance: DEXAMETHASONE

REACTIONS (1)
  - Asthenia [Not Recovered/Not Resolved]
